FAERS Safety Report 10236382 (Version 1)
Quarter: 2014Q1

REPORT INFORMATION
  Report Type: Spontaneous
  Country: US (occurrence: None)
  Receive Date: 20140306
  Receipt Date: 20140306
  Transmission Date: 20141002
  Serious: Yes (Disabling)
  Sender: FDA-Public Use
  Company Number: 163-21880-13042195

PATIENT
  Age: 60 Year
  Sex: Male

DRUGS (24)
  1. REVLIMID [Suspect]
     Indication: PLASMA CELL MYELOMA
     Route: 048
     Dates: start: 20110909
  2. ASPIRIN (ACETYLSALICYLIC ACID) (UNKNOWN) (ACETYLSALICYLIC ACID) [Concomitant]
  3. FLEXERIL (CYCLOBENZAPRINE HYDROCHLORIDE) (UNKNOWN) [Concomitant]
  4. KLONOPIN (CLONAZEPAM) (1 MILLIGRAM, UNKNOWN) [Concomitant]
  5. OXYCONTIN (OXYCODONE HYDROCHLORIDE) (40 MILLIGRAM, SUSTAINED-RELEASE TABLET) [Concomitant]
  6. PERCOCET (OXYCOCET) (TABLETS) [Concomitant]
  7. TOFRANIL (IMIPRAMINE HYDROCHLORIDE) (TABLETS) [Concomitant]
  8. ACAI (EUTERPE OLERACEA FRUIT) (POWDER) [Concomitant]
  9. ASTRAGALUS (ASTRAGALUS ROOT TOCHIMOTOTENKAIDO) (UNKNOWN) [Concomitant]
  10. CALCIUM WITH VITAMIN D (CALCIUM WITH VITAMIN D) (UNKNOWN) [Concomitant]
  11. CLARITIN (LORATADINE) (TABLETS) [Concomitant]
  12. COLACE (DOCUSATE SODIUM) (CAPSULES) [Concomitant]
  13. COUMADIN (WARFARIN SODIUM) (UNKNOWN) [Concomitant]
  14. JUICE PLUS (JUICE PLUS) (UNKNOWN) [Concomitant]
  15. LORAZEPAM (LORAZEPAM) (TABLETS) [Concomitant]
  16. MANUKA HONEY ()MANUKA HONEY) (UNKNOWN) [Concomitant]
  17. MULTIVITAMINS (MULTIVITAMINS) (UNKNOWN) [Concomitant]
  18. TURMERIC (TURMERIC) (UNKNOWN) [Concomitant]
  19. TYLENOL (PARACETAMOL) (TABLETS) [Concomitant]
  20. VALACYCLOVIR (VALACICLOVIR HYDROCHLORIDE) (TABLETS) [Concomitant]
  21. VITAMIN B-50 (VITAMIN B) (TABLETS) [Concomitant]
  22. ZANTAC (RANITIDINE HYDROCHLORIDE) (TABLETS) [Concomitant]
  23. PREVACID (LANSOPRAZOLE) (SUSTAINED-RELEASE CAPSULE) [Concomitant]
  24. FISH OIL (FISH OIL) (PILL) [Concomitant]

REACTIONS (3)
  - Neuropathy peripheral [None]
  - Dry eye [None]
  - Lymphoedema [None]
